FAERS Safety Report 6502851-6 (Version None)
Quarter: 2009Q4

REPORT INFORMATION
  Report Type: 
  Country: None (occurrence: None)
  Receive Date: 20091217
  Receipt Date: 20091116
  Transmission Date: 20100525
  Serious: No
  Sender: FDA-Public Use
  Company Number: US-BAYER-200939767NA

PATIENT
  Age: 45 Year
  Sex: Female

DRUGS (2)
  1. YAZ [Suspect]
     Indication: MENSTRUATION IRREGULAR
     Route: 048
     Dates: start: 20090601, end: 20090701
  2. YAZ [Suspect]
     Route: 048
     Dates: start: 20091101

REACTIONS (3)
  - DYSPNOEA [None]
  - SOMNOLENCE [None]
  - WEIGHT DECREASED [None]
